FAERS Safety Report 4377661-9 (Version None)
Quarter: 2004Q2

REPORT INFORMATION
  Report Type: 
  Country: None (occurrence: None)
  Receive Date: 20040615
  Receipt Date: 20020617
  Transmission Date: 20050107
  Serious: Yes (Death)
  Sender: FDA-Public Use
  Company Number: JP-ROCHE-315388

PATIENT
  Age: 39 Year
  Sex: Female

DRUGS (7)
  1. CELLCEPT [Suspect]
     Route: 048
     Dates: start: 20000403, end: 20000429
  2. CELLCEPT [Suspect]
     Route: 048
     Dates: start: 20000430, end: 20020610
  3. PREDONINE [Suspect]
     Route: 048
     Dates: start: 20000405, end: 20020610
  4. NEORAL [Suspect]
     Route: 048
     Dates: start: 20000405, end: 20020610
  5. SANDIMMUNE [Concomitant]
     Route: 042
     Dates: start: 20000329, end: 20000404
  6. METHYLPREDNISOLONE [Concomitant]
     Route: 048
     Dates: start: 20000320, end: 20000402
  7. METHYLPREDNISOLONE [Concomitant]
     Route: 042
     Dates: start: 20000403, end: 20000405

REACTIONS (12)
  - ANAEMIA [None]
  - ASCITES [None]
  - CANDIDIASIS [None]
  - CATHETER RELATED INFECTION [None]
  - COMPLICATIONS OF TRANSPLANT SURGERY [None]
  - EMBOLISM [None]
  - FEELING ABNORMAL [None]
  - MALNUTRITION [None]
  - NAUSEA [None]
  - PULMONARY ARTERY THROMBOSIS [None]
  - PULMONARY EMBOLISM [None]
  - SHOCK [None]
